FAERS Safety Report 25946540 (Version 1)
Quarter: 2025Q4

REPORT INFORMATION
  Report Type: Spontaneous
  Country: US (occurrence: US)
  Receive Date: 20251022
  Receipt Date: 20251022
  Transmission Date: 20260118
  Serious: Yes (Hospitalization)
  Sender: PACIRA
  Company Number: US-ORG100016242-2025000042

PATIENT
  Age: 60 Year
  Sex: Female
  Weight: 142.88 kg

DRUGS (1)
  1. ZILRETTA [Suspect]
     Active Substance: TRIAMCINOLONE ACETONIDE
     Indication: Osteoarthritis
     Route: 014
     Dates: start: 20241204, end: 20241204

REACTIONS (3)
  - Injection site joint infection [Recovering/Resolving]
  - Gait inability [Unknown]
  - Arthralgia [Unknown]

NARRATIVE: CASE EVENT DATE: 20250120
